FAERS Safety Report 5907280-1 (Version None)
Quarter: 2008Q4

REPORT INFORMATION
  Report Type: 
  Country: None (occurrence: None)
  Receive Date: 20081003
  Receipt Date: 20080926
  Transmission Date: 20090506
  Serious: Yes (Other)
  Sender: FDA-Public Use
  Company Number: PHEH2008US08637

PATIENT
  Sex: Female

DRUGS (3)
  1. ZOMETA [Suspect]
  2. FOSAMAX [Suspect]
     Route: 048
  3. ACTONEL [Suspect]
     Route: 048

REACTIONS (1)
  - OSTEONECROSIS [None]
